FAERS Safety Report 11257609 (Version 2)
Quarter: 2016Q1

REPORT INFORMATION
  Report Type: Spontaneous
  Country: US (occurrence: US)
  Receive Date: 20150710
  Receipt Date: 20160303
  Transmission Date: 20160525
  Serious: Yes (Hospitalization)
  Sender: FDA-Public Use
  Company Number: US-CIPLA LTD.-2015US05483

PATIENT

DRUGS (1)
  1. GEMCITABINE [Suspect]
     Active Substance: GEMCITABINE\GEMCITABINE HYDROCHLORIDE
     Route: 065

REACTIONS (4)
  - Erythema [Recovered/Resolved]
  - Lymphoedema [Recovering/Resolving]
  - Oedema peripheral [Recovering/Resolving]
  - Pseudocellulitis [Recovering/Resolving]
